FAERS Safety Report 8962509 (Version 1)
Quarter: 2012Q4

REPORT INFORMATION
  Report Type: Spontaneous
  Country: CA (occurrence: None)
  Receive Date: 20121206
  Receipt Date: 20121206
  Transmission Date: 20130627
  Serious: Yes (Other)
  Sender: FDA-Public Use
  Company Number: FK201203605

PATIENT
  Age: 48 Year
  Sex: Male

DRUGS (1)
  1. DOXYCYCLINE [Suspect]
     Indication: FEVER

REACTIONS (11)
  - Venoocclusive liver disease [None]
  - Drug interaction [None]
  - Abdominal distension [None]
  - Alcohol use [None]
  - Hepatomegaly [None]
  - Ascites [None]
  - Portal hypertension [None]
  - Varices oesophageal [None]
  - Portal hypertensive gastropathy [None]
  - Splenomegaly [None]
  - Toxicity to various agents [None]
